FAERS Safety Report 12181499 (Version 1)
Quarter: 2016Q1

REPORT INFORMATION
  Report Type: Spontaneous
  Country: DK (occurrence: DK)
  Receive Date: 20160315
  Receipt Date: 20160315
  Transmission Date: 20160526
  Serious: Yes (Life-Threatening, Hospitalization)
  Sender: FDA-Public Use
  Company Number: DK-ACTAVIS-2016-04895

PATIENT
  Age: 65 Year
  Sex: Female

DRUGS (5)
  1. OXAPAX [Suspect]
     Active Substance: OXAZEPAM
     Indication: SEDATIVE THERAPY
     Dosage: UNK UNK, UNKNOWN (STRENGTH: 15 MG (PRESCRIBED DOSE: 0.5 TABLET MORNING AND 1.5 TABLETS AT NIGHT)
     Route: 048
  2. OXABENZ [Suspect]
     Active Substance: OXAZEPAM
     Indication: SEDATIVE THERAPY
     Dosage: UNK UNK, UNKNOWN (STRENGTH: 15 MG (PRESCRIBED DOSE: 0.5 TABLET MORNING AND 1.5 TABLETS AT NIGHT)
     Route: 048
  3. TRADOLAN [Suspect]
     Active Substance: TRAMADOL
     Indication: PAIN
     Dosage: UNK UNK, UNKNOWN (STRENGTH: 50 MG , PRESCRIBED DOSE: 1 TABLET AS NEEDED, BUT NO MORE THAN 3 DAILY)
     Route: 048
  4. NITRAZEPAM [Suspect]
     Active Substance: NITRAZEPAM
     Indication: INSOMNIA
     Dosage: UNK UNK, UNKNOWN (ORDINERET DOSIS: 7,5 MG TIL NATTEN)/(PRESCRIBED DOSE: 7.5 MG NIGHTLY)
     Route: 048
  5. MELATONIN [Concomitant]
     Active Substance: MELATONIN
     Indication: PRODUCT USED FOR UNKNOWN INDICATION
     Dosage: UNK, UNKNOWN
     Route: 065

REACTIONS (5)
  - Loss of consciousness [Recovered/Resolved]
  - Cerebral disorder [Recovered/Resolved]
  - Intentional overdose [Recovered/Resolved]
  - Suicide attempt [Recovered/Resolved]
  - Life support [Recovered/Resolved]

NARRATIVE: CASE EVENT DATE: 20160126
